FAERS Safety Report 5565895-7 (Version None)
Quarter: 2007Q4

REPORT INFORMATION
  Report Type: 
  Country: None (occurrence: None)
  Receive Date: 20071213
  Receipt Date: 20071205
  Transmission Date: 20080405
  Serious: Yes (Death)
  Sender: FDA-Public Use
  Company Number: 144-20785-07110544

PATIENT
  Age: 62 Year
  Sex: Male
  Weight: 63 kg

DRUGS (16)
  1. THALIDOMIDE [Suspect]
     Indication: MULTIPLE MYELOMA
     Dosage: 200 MG, QD, ORAL
     Route: 048
     Dates: start: 20070911, end: 20071021
  2. DEXAMETHASONE [Suspect]
     Indication: MULTIPLE MYELOMA
     Dosage: 40 MG, QD, ORAL
     Route: 048
     Dates: start: 20070911, end: 20071020
  3. HEPARIN-FRACTION (HEPARIN-FRACTION) [Suspect]
     Indication: DRUG USE FOR UNKNOWN INDICATION
  4. ACETYLCYSTEINE [Concomitant]
  5. LEVOFLOXACIN [Concomitant]
  6. OMEPRAZOLE [Concomitant]
  7. CALCITE D (CALCITE D) [Concomitant]
  8. ERGOCALCIFEROL (ERGOCALCIFEROL) [Concomitant]
  9. ENOXAPARIN SODIUM [Concomitant]
  10. DIAZEPAM [Concomitant]
  11. ALLOPURINOL [Concomitant]
  12. NEBIVOLOL HYDROCHLORIDE (NEBIVOLOL HYDROCHLORIDE) [Concomitant]
  13. HYDROCHLOROTHIAZIDE [Concomitant]
  14. IRBESARTAN [Concomitant]
  15. FLUVASTATIN SODIUM (FLUVASTATIN SODIUM) [Concomitant]
  16. COAPROVEL(KARVEA HCT) [Concomitant]

REACTIONS (3)
  - BRAIN STEM ISCHAEMIA [None]
  - CARDIO-RESPIRATORY ARREST [None]
  - ISCHAEMIC STROKE [None]
